FAERS Safety Report 17631917 (Version 1)
Quarter: 2020Q2

REPORT INFORMATION
  Report Type: Spontaneous
  Country: SE (occurrence: SE)
  Receive Date: 20200406
  Receipt Date: 20200406
  Transmission Date: 20200713
  Serious: Yes (Death)
  Sender: FDA-Public Use
  Company Number: SE-JNJFOC-20200336282

PATIENT
  Age: 39 Year
  Sex: Female

DRUGS (6)
  1. PALIPERIDONE PALMITATE [Suspect]
     Active Substance: PALIPERIDONE PALMITATE
     Route: 030
     Dates: start: 201305
  2. THERALEN [Concomitant]
     Active Substance: TRIMEPRAZINE
     Dosage: ^UNDER VISSA PERIODER^. OKAND TERAPI/DOSERINGSREGIM
  3. LEVAXIN [Concomitant]
     Active Substance: LEVOTHYROXINE SODIUM
     Dates: start: 2013
  4. ARIPIPRAZOL [Suspect]
     Active Substance: ARIPIPRAZOLE
     Indication: PSYCHOTIC DISORDER
     Dosage: ^10 MG/DAG^
     Route: 065
     Dates: start: 201305
  5. PALIPERIDONE PALMITATE [Suspect]
     Active Substance: PALIPERIDONE PALMITATE
     Indication: PSYCHOTIC DISORDER
     Dosage: ^100 MG /VAR 4:E VECKA^
     Route: 030
     Dates: start: 201109, end: 201305
  6. PROPAVAN [Concomitant]
     Active Substance: PROPIOMAZINE
     Dosage: TILL NIGHT

REACTIONS (1)
  - Cardiomyopathy [Fatal]

NARRATIVE: CASE EVENT DATE: 2019
